FAERS Safety Report 12081716 (Version 1)
Quarter: 2016Q1

REPORT INFORMATION
  Report Type: Spontaneous
  Country: US (occurrence: US)
  Receive Date: 20160216
  Receipt Date: 20160216
  Transmission Date: 20160526
  Serious: No
  Sender: FDA-Public Use
  Company Number: US-PERRIGO-15US010444

PATIENT
  Age: 2 Year
  Sex: Female
  Weight: 19.96 kg

DRUGS (5)
  1. IBUPROFEN. [Suspect]
     Active Substance: IBUPROFEN
     Dosage: 200 MG, EVERY 6 HOURS
     Route: 048
     Dates: start: 20151003
  2. ACETAMINOPHEN CHILD CHERRY 32 MG/ML 175 [Suspect]
     Active Substance: ACETAMINOPHEN
     Indication: PAIN
     Dosage: 320 MG, EVERY 12 HOURS
     Route: 048
     Dates: start: 20150929, end: 20151002
  3. VITAMINS                           /00067501/ [Concomitant]
     Active Substance: VITAMINS
     Indication: ROUTINE HEALTH MAINTENANCE
     Dosage: UNK
     Route: 065
     Dates: start: 2014
  4. IBUPROFEN. [Suspect]
     Active Substance: IBUPROFEN
     Indication: PAIN
     Dosage: 200 MG, EVERY 12 HOURS
     Route: 048
     Dates: start: 20150929, end: 20151002
  5. FLONASE                            /00908302/ [Concomitant]
     Active Substance: MOMETASONE FUROATE
     Indication: SEASONAL ALLERGY
     Dosage: UNK
     Route: 065
     Dates: start: 2014

REACTIONS (3)
  - Generalised erythema [Recovering/Resolving]
  - Urticaria [Recovering/Resolving]
  - Incorrect dose administered [Recovered/Resolved]

NARRATIVE: CASE EVENT DATE: 20150929
